FAERS Safety Report 6499144-2 (Version None)
Quarter: 2009Q4

REPORT INFORMATION
  Report Type: 
  Country: None (occurrence: None)
  Receive Date: 20091215
  Receipt Date: 20091203
  Transmission Date: 20100525
  Serious: Yes (Other)
  Sender: FDA-Public Use
  Company Number: GB-SANOFI-AVENTIS-2009SA006487

PATIENT
  Age: 33 Year
  Sex: Male

DRUGS (5)
  1. ELOXATIN [Suspect]
     Route: 041
     Dates: start: 20090501, end: 20090501
  2. ELOXATIN [Suspect]
     Route: 041
     Dates: start: 20091001, end: 20091001
  3. FLUOROURACIL [Suspect]
     Route: 041
     Dates: start: 20090501, end: 20090501
  4. FLUOROURACIL [Suspect]
     Route: 041
     Dates: start: 20091001, end: 20091001
  5. CLOZAPINE [Suspect]
     Route: 048
     Dates: start: 20080811, end: 20091117

REACTIONS (2)
  - LEUKOPENIA [None]
  - NEUTROPENIA [None]
